FAERS Safety Report 9232088 (Version 1)
Quarter: 2013Q2

REPORT INFORMATION
  Report Type: Spontaneous
  Country: US (occurrence: US)
  Receive Date: 20130415
  Receipt Date: 20130415
  Transmission Date: 20140414
  Serious: No
  Sender: FDA-Public Use
  Company Number: US-PFIZER INC-2013117734

PATIENT
  Age: 50 Year
  Sex: Female
  Weight: 70.75 kg

DRUGS (7)
  1. RELPAX [Suspect]
     Indication: MIGRAINE
     Dosage: 40 MG, AS NEEDED
     Route: 048
     Dates: start: 201003
  2. RELPAX [Suspect]
     Dosage: UNK
     Route: 048
  3. SYNTHROID [Concomitant]
     Indication: THYROID DISORDER
     Dosage: 75 UG, UNK
  4. CYTOMEL [Concomitant]
     Dosage: 5 UG, UNK
  5. ZANAFLEX [Concomitant]
     Dosage: 4 MG, UNK
  6. ZYRTEC [Concomitant]
     Indication: HYPERSENSITIVITY
     Dosage: 10 MG, 1X/DAY
  7. TOPAMAX [Concomitant]
     Dosage: 200 MG, 2X/DAY

REACTIONS (4)
  - Chest discomfort [Unknown]
  - Drug ineffective [Unknown]
  - Headache [Unknown]
  - Drug tolerance [Unknown]
